FAERS Safety Report 17903896 (Version 1)
Quarter: 2020Q2

REPORT INFORMATION
  Report Type: Spontaneous
  Country: US (occurrence: US)
  Receive Date: 20200616
  Receipt Date: 20200616
  Transmission Date: 20200714
  Serious: No
  Sender: FDA-Public Use
  Company Number: US-TEVA-2020-US-1508512

PATIENT
  Age: 75 Year
  Sex: Female

DRUGS (1)
  1. PIMOZIDE. [Suspect]
     Active Substance: PIMOZIDE
     Indication: PARANOIA
     Dosage: 4 MILLIGRAM DAILY;
     Route: 065

REACTIONS (3)
  - Withdrawal syndrome [Recovered/Resolved]
  - Diaphragmatic disorder [Recovered/Resolved]
  - Tremor [Recovered/Resolved]
